FAERS Safety Report 16367200 (Version 1)
Quarter: 2019Q2

REPORT INFORMATION
  Report Type: Spontaneous
  Country: CA (occurrence: CA)
  Receive Date: 20190529
  Receipt Date: 20190529
  Transmission Date: 20190711
  Serious: Yes (Other)
  Sender: FDA-Public Use
  Company Number: CA-TEVA-2019-CA-1056464

PATIENT
  Age: 63 Year
  Sex: Female

DRUGS (1)
  1. SORIATANE [Suspect]
     Active Substance: ACITRETIN
     Indication: PRODUCT USED FOR UNKNOWN INDICATION
     Dosage: 25 MILLIGRAM DAILY;
     Route: 065

REACTIONS (7)
  - Dry eye [Unknown]
  - Dry skin [Unknown]
  - Epistaxis [Unknown]
  - Skin haemorrhage [Unknown]
  - Eye haemorrhage [Unknown]
  - Headache [Unknown]
  - Nasal dryness [Unknown]
